FAERS Safety Report 19704407 (Version 1)
Quarter: 2021Q3

REPORT INFORMATION
  Report Type: Spontaneous
  Country: US (occurrence: US)
  Receive Date: 20210814
  Receipt Date: 20210814
  Transmission Date: 20211014
  Serious: No
  Sender: FDA-Public Use
  Company Number: None

PATIENT
  Weight: 79.38 kg

DRUGS (1)
  1. KRATOM (MITRAGYNA SPECIOSA) [Suspect]
     Active Substance: HERBALS\MITRAGYNINE

REACTIONS (2)
  - Product use in unapproved indication [None]
  - No adverse event [None]
